FAERS Safety Report 4286840-0 (Version None)
Quarter: 2004Q1

REPORT INFORMATION
  Report Type: 
  Country: None (occurrence: None)
  Receive Date: 20040206
  Receipt Date: 20040129
  Transmission Date: 20041129
  Serious: Yes (Hospitalization)
  Sender: FDA-Public Use
  Company Number: PHEH2004US01342

PATIENT
  Age: 7 Year
  Sex: Female

DRUGS (2)
  1. TRILEPTAL [Suspect]
     Indication: CONVULSION
     Dosage: 150 MG, TID
     Route: 048
     Dates: start: 20030101
  2. LAMOTRIGINE [Concomitant]

REACTIONS (2)
  - MENINGITIS ASEPTIC [None]
  - PYREXIA [None]
